FAERS Safety Report 5850755-4 (Version None)
Quarter: 2008Q3

REPORT INFORMATION
  Report Type: 
  Country: None (occurrence: None)
  Receive Date: 20080819
  Receipt Date: 20080819
  Transmission Date: 20090109
  Serious: Yes (Hospitalization, Disabling)
  Sender: FDA-Public Use
  Company Number: None

PATIENT
  Age: 33 Year
  Sex: Female
  Weight: 54.4316 kg

DRUGS (1)
  1. MIRENA [Suspect]

REACTIONS (6)
  - CONTRACEPTIVE DEVICE COMPLICATION [None]
  - DISCOMFORT [None]
  - DYSSTASIA [None]
  - MOVEMENT DISORDER [None]
  - PAIN [None]
  - UTERINE RUPTURE [None]
